FAERS Safety Report 18294131 (Version 5)
Quarter: 2020Q4

REPORT INFORMATION
  Report Type: Spontaneous
  Country: US (occurrence: US)
  Receive Date: 20200921
  Receipt Date: 20201204
  Transmission Date: 20210113
  Serious: Yes (Death, Other)
  Sender: FDA-Public Use
  Company Number: US-B.I. PHARMACEUTICALS,INC./RIDGEFIELD-2020-BI-047857

PATIENT
  Age: 86 Year
  Sex: Female

DRUGS (2)
  1. COMBIVENT [Suspect]
     Active Substance: ALBUTEROL SULFATE\IPRATROPIUM BROMIDE
     Indication: CHRONIC OBSTRUCTIVE PULMONARY DISEASE
     Dosage: 2 INHALATIONS, ONCE DAILY
     Route: 065
     Dates: start: 2012
  2. COMBIVENT [Suspect]
     Active Substance: ALBUTEROL SULFATE\IPRATROPIUM BROMIDE
     Dosage: 1 INHALATION 4 TIMES A DAY
     Route: 065
     Dates: start: 2015, end: 20201030

REACTIONS (5)
  - Therapeutic product effect incomplete [Unknown]
  - Oxygen saturation decreased [Fatal]
  - Surgery [Unknown]
  - Cataract [Unknown]
  - Product quality issue [Fatal]

NARRATIVE: CASE EVENT DATE: 20200820
